FAERS Safety Report 5163549-2 (Version None)
Quarter: 2006Q4

REPORT INFORMATION
  Report Type: 
  Country: None (occurrence: None)
  Receive Date: 20061128
  Receipt Date: 20061128
  Transmission Date: 20070319
  Serious: Yes (Death)
  Sender: FDA-Public Use
  Company Number: None

PATIENT
  Age: 75 Year
  Sex: Male
  Weight: 57 kg

DRUGS (4)
  1. OXALIPLATIN [Suspect]
     Indication: RECTAL CANCER
     Dosage: 40 MG/M2 IV
     Route: 042
     Dates: start: 20060807, end: 20060821
  2. BEVACIZUMAB [Suspect]
     Indication: RECTAL CANCER
     Dosage: 5 MG/KG IV
     Route: 042
     Dates: start: 20060807
  3. BEVACIZUMAB [Suspect]
     Indication: RECTAL CANCER
     Dosage: 5 MG/KG IV
     Route: 042
     Dates: start: 20060821
  4. FLUOROURACIL [Suspect]
     Dosage: 200 MG/M2/DAY IV
     Route: 042
     Dates: start: 20060807, end: 20060828

REACTIONS (3)
  - FALL [None]
  - FATIGUE [None]
  - SUDDEN DEATH [None]
